FAERS Safety Report 6216900-6 (Version None)
Quarter: 2009Q2

REPORT INFORMATION
  Report Type: 
  Country: None (occurrence: None)
  Receive Date: 20090605
  Receipt Date: 20090601
  Transmission Date: 20091009
  Serious: Yes (Other)
  Sender: FDA-Public Use
  Company Number: US-AMGEN-US349727

PATIENT
  Sex: Female

DRUGS (4)
  1. NPLATE [Suspect]
     Indication: IDIOPATHIC THROMBOCYTOPENIC PURPURA
     Dates: start: 20090416, end: 20090521
  2. CORTICOSTEROIDS [Concomitant]
     Dates: start: 20090101
  3. IMMUNOGLOBULINS [Concomitant]
     Dates: start: 20090101
  4. RITUXAN [Concomitant]
     Dates: start: 20090101

REACTIONS (3)
  - BLAST CELLS PRESENT [None]
  - BONE MARROW DISORDER [None]
  - DRUG INEFFECTIVE [None]
